FAERS Safety Report 7350524-2 (Version None)
Quarter: 2011Q1

REPORT INFORMATION
  Report Type: 
  Country: None (occurrence: None)
  Receive Date: 20110309
  Receipt Date: 20110309
  Transmission Date: 20110831
  Serious: Yes (Hospitalization, Other)
  Sender: FDA-Public Use
  Company Number: None

PATIENT
  Age: 84 Year
  Sex: Male
  Weight: 91.6266 kg

DRUGS (1)
  1. PRADAXA [Suspect]
     Indication: ATRIAL FIBRILLATION
     Dosage: 1 TWICE DAILY PO
     Route: 048
     Dates: start: 20110211, end: 20110214

REACTIONS (9)
  - HAEMATOCHEZIA [None]
  - OEDEMA PERIPHERAL [None]
  - DYSPNOEA [None]
  - LIP SWELLING [None]
  - WHEEZING [None]
  - FLUID RETENTION [None]
  - PULMONARY OEDEMA [None]
  - DECREASED APPETITE [None]
  - DIARRHOEA [None]
